FAERS Safety Report 9430297 (Version 2)
Quarter: 2014Q1

REPORT INFORMATION
  Report Type: Report from Study
  Country: JP (occurrence: JP)
  Receive Date: 20130730
  Receipt Date: 20140203
  Transmission Date: 20141002
  Serious: Yes (Other)
  Sender: FDA-Public Use
  Company Number: JP-CELGENEUS-087-21880-11010478

PATIENT
  Age: 73 Year
  Sex: Female

DRUGS (64)
  1. REVLIMID [Suspect]
     Dosage: 5 MILLIGRAM
     Route: 048
     Dates: start: 20120627, end: 20120710
  2. REVLIMID [Suspect]
     Dosage: 5 MILLIGRAM
     Route: 048
     Dates: start: 20120801, end: 20120814
  3. REVLIMID [Suspect]
     Dosage: 5 MILLIGRAM
     Route: 048
     Dates: start: 20120905, end: 20120918
  4. REVLIMID [Suspect]
     Dosage: 5 MILLIGRAM
     Route: 048
     Dates: start: 20121010, end: 20121023
  5. REVLIMID [Suspect]
     Dosage: 5 MILLIGRAM
     Route: 048
     Dates: start: 20121114, end: 20121127
  6. REVLIMID [Suspect]
     Dosage: 5 MILLIGRAM
     Route: 048
     Dates: start: 20121219, end: 20130101
  7. REVLIMID [Suspect]
     Dosage: 5 MILLIGRAM
     Route: 048
     Dates: start: 20130123, end: 20130205
  8. REVLIMID [Suspect]
     Dosage: 5 MILLIGRAM
     Route: 048
     Dates: start: 20130227, end: 20130312
  9. REVLIMID [Suspect]
     Dosage: 5 MILLIGRAM
     Route: 048
     Dates: start: 20130403, end: 20130416
  10. REVLIMID [Suspect]
     Dosage: 5 MILLIGRAM
     Route: 048
     Dates: start: 20130508, end: 20130521
  11. REVLIMID [Suspect]
     Dosage: 5 MILLIGRAM
     Route: 048
     Dates: start: 20130612, end: 20130625
  12. REVLIMID [Suspect]
     Dosage: 5 MILLIGRAM
     Route: 048
     Dates: start: 20130717, end: 20130730
  13. REVLIMID [Suspect]
     Dosage: 5 MILLIGRAM
     Route: 048
     Dates: start: 20130821, end: 20130903
  14. REVLIMID [Suspect]
     Dosage: 5 MILLIGRAM
     Route: 048
     Dates: start: 20130925, end: 20131008
  15. REVLIMID [Suspect]
     Dosage: 5 MILLIGRAM
     Route: 048
     Dates: start: 20131030, end: 20131112
  16. REVLIMID [Suspect]
     Dosage: 5 MILLIGRAM
     Route: 048
     Dates: start: 20131204, end: 20131224
  17. LENADEX [Suspect]
     Indication: PLASMA CELL MYELOMA
     Dosage: 16 MILLIGRAM
     Route: 048
     Dates: start: 20101115, end: 20101118
  18. LENADEX [Suspect]
     Dosage: 16 MILLIGRAM
     Route: 048
     Dates: start: 20101123, end: 20101126
  19. LENADEX [Suspect]
     Dosage: 16 MILLIGRAM
     Route: 048
     Dates: start: 20101129, end: 20101202
  20. LENADEX [Suspect]
     Dosage: 16 MILLIGRAM
     Route: 048
     Dates: start: 20101213, end: 20101216
  21. LENADEX [Suspect]
     Dosage: 12 MILLIGRAM
     Route: 048
     Dates: start: 20130123, end: 20130126
  22. LENADEX [Suspect]
     Dosage: 12 MILLIGRAM
     Route: 048
     Dates: start: 20130131, end: 20130203
  23. LENADEX [Suspect]
     Dosage: 8 MILLIGRAM
     Route: 048
     Dates: start: 20130227, end: 20130302
  24. LENADEX [Suspect]
     Dosage: 8 MILLIGRAM
     Route: 048
     Dates: start: 20130307, end: 20130310
  25. LENADEX [Suspect]
     Dosage: 8 MILLIGRAM
     Route: 048
     Dates: start: 20130403, end: 20130406
  26. LENADEX [Suspect]
     Dosage: 8 MILLIGRAM
     Route: 048
     Dates: start: 20130411, end: 20130414
  27. LENADEX [Suspect]
     Dosage: 8 MILLIGRAM
     Route: 048
     Dates: start: 20130508, end: 20130511
  28. LENADEX [Suspect]
     Dosage: 8 MILLIGRAM
     Route: 048
     Dates: start: 20130516, end: 20130519
  29. LENADEX [Suspect]
     Dosage: 8 MILLIGRAM
     Route: 048
     Dates: start: 20130612, end: 20130615
  30. LENADEX [Suspect]
     Dosage: 8 MILLIGRAM
     Route: 048
     Dates: start: 20130620, end: 20130623
  31. LENADEX [Suspect]
     Dosage: 8 MILLIGRAM
     Route: 048
     Dates: start: 20130717, end: 20130720
  32. LENADEX [Suspect]
     Dosage: 8 MILLIGRAM
     Route: 048
     Dates: start: 20130725, end: 20130728
  33. LENADEX [Suspect]
     Dosage: 8 MILLIGRAM
     Route: 048
     Dates: start: 20130725, end: 20130824
  34. LENADEX [Suspect]
     Dosage: 8 MILLIGRAM
     Route: 048
     Dates: start: 20130829, end: 20130901
  35. LENADEX [Suspect]
     Dosage: 8 MILLIGRAM
     Route: 048
     Dates: start: 20130925, end: 20130928
  36. LENADEX [Suspect]
     Dosage: 8 MILLIGRAM
     Route: 048
     Dates: start: 20131003, end: 20131006
  37. LENADEX [Suspect]
     Dosage: 4 MILLIGRAM
     Route: 048
     Dates: start: 20131030, end: 20131102
  38. LENADEX [Suspect]
     Dosage: 4 MILLIGRAM
     Route: 048
     Dates: start: 20131204, end: 20131207
  39. LENADEX [Suspect]
     Dosage: 4 MILLIGRAM
     Route: 048
     Dates: start: 20131212, end: 20131215
  40. BAYASPIRIN [Concomitant]
     Indication: PROPHYLAXIS
     Dosage: 100 MILLIGRAM
     Route: 048
     Dates: start: 20101115, end: 20110105
  41. BAYASPIRIN [Concomitant]
     Dosage: 100 MILLIGRAM
     Route: 048
     Dates: start: 20110117, end: 20110201
  42. BAYASPIRIN [Concomitant]
     Dosage: 100 MILLIGRAM
     Route: 048
     Dates: start: 20110207, end: 20110424
  43. BAYASPIRIN [Concomitant]
     Dosage: 100 MILLIGRAM
     Route: 048
     Dates: start: 20110502, end: 20121218
  44. REVLIMID [Suspect]
     Indication: PLASMA CELL MYELOMA
     Dosage: 10 MILLIGRAM
     Route: 048
     Dates: start: 20101115, end: 20101128
  45. REVLIMID [Suspect]
     Dosage: 5 MILLIGRAM
     Route: 048
     Dates: start: 20101129, end: 20101212
  46. REVLIMID [Suspect]
     Dosage: 5 MILLIGRAM
     Route: 048
     Dates: start: 20101213, end: 20110102
  47. REVLIMID [Suspect]
     Dosage: 5 MILLIGRAM
     Route: 048
     Dates: start: 20110110, end: 20110130
  48. REVLIMID [Suspect]
     Dosage: 5 MILLIGRAM
     Route: 048
     Dates: start: 20110207, end: 20110227
  49. REVLIMID [Suspect]
     Dosage: 5 MILLIGRAM
     Route: 048
     Dates: start: 20110307, end: 20110327
  50. REVLIMID [Suspect]
     Dosage: 5 MILLIGRAM
     Route: 048
     Dates: start: 20110404, end: 20110424
  51. REVLIMID [Suspect]
     Dosage: 5 MILLIGRAM
     Route: 048
     Dates: start: 20110502, end: 20110522
  52. REVLIMID [Suspect]
     Dosage: 10 MILLIGRAM
     Route: 048
     Dates: start: 20110530, end: 20110619
  53. REVLIMID [Suspect]
     Dosage: 10 MILLIGRAM
     Route: 048
     Dates: start: 20110627, end: 20110717
  54. REVLIMID [Suspect]
     Dosage: 10 MILLIGRAM
     Route: 048
     Dates: start: 20110725, end: 20110814
  55. REVLIMID [Suspect]
     Dosage: 10 MILLIGRAM
     Route: 048
     Dates: start: 20110822, end: 20110911
  56. REVLIMID [Suspect]
     Dosage: 10 MILLIGRAM
     Route: 048
     Dates: start: 20110919, end: 20111009
  57. REVLIMID [Suspect]
     Dosage: 10 MILLIGRAM
     Route: 048
     Dates: start: 20111017, end: 20111106
  58. REVLIMID [Suspect]
     Dosage: 10 MILLIGRAM
     Route: 048
     Dates: start: 20111114, end: 20111204
  59. REVLIMID [Suspect]
     Dosage: 10 MILLIGRAM
     Route: 048
     Dates: start: 20111212, end: 20120101
  60. REVLIMID [Suspect]
     Dosage: 10 MILLIGRAM
     Route: 048
     Dates: start: 20120111, end: 20120129
  61. REVLIMID [Suspect]
     Dosage: 10 MILLIGRAM
     Route: 048
     Dates: start: 20120206, end: 20120304
  62. REVLIMID [Suspect]
     Dosage: 10 MILLIGRAM
     Route: 048
     Dates: start: 20120402, end: 20120415
  63. REVLIMID [Suspect]
     Dosage: 10 MILLIGRAM
     Route: 048
     Dates: start: 20120502, end: 20120515
  64. REVLIMID [Suspect]
     Dosage: 5 MILLIGRAM
     Route: 048
     Dates: start: 20120530, end: 20120612

REACTIONS (3)
  - Neutropenia [Recovering/Resolving]
  - Nausea [Recovered/Resolved]
  - Hepatic function abnormal [Recovering/Resolving]
